FAERS Safety Report 8435579-6 (Version None)
Quarter: 2012Q2

REPORT INFORMATION
  Report Type: 
  Country: None (occurrence: None)
  Receive Date: 20120614
  Receipt Date: 20120605
  Transmission Date: 20120825
  Serious: Yes (Hospitalization)
  Sender: FDA-Public Use
  Company Number: JP-JNJFOC-20120601139

PATIENT
  Sex: Male
  Weight: 63 kg

DRUGS (11)
  1. LOXONIN [Suspect]
     Route: 048
     Dates: start: 20120515, end: 20120521
  2. ROCEPHIN [Suspect]
     Indication: LARYNGITIS
     Route: 042
     Dates: start: 20120510, end: 20120515
  3. SELBEX [Concomitant]
     Route: 048
     Dates: start: 20120515, end: 20120521
  4. RABEPRAZOLE SODIUM [Concomitant]
     Indication: PROPHYLAXIS AGAINST GASTROINTESTINAL ULCER
     Route: 048
     Dates: start: 20120511
  5. MICONAZOLE [Suspect]
     Route: 049
  6. SELBEX [Concomitant]
     Indication: PROPHYLAXIS AGAINST GASTROINTESTINAL ULCER
     Route: 048
     Dates: start: 20120510, end: 20120514
  7. MICONAZOLE [Suspect]
     Indication: LARYNGITIS FUNGAL
     Dosage: 2%
     Route: 049
     Dates: start: 20120510, end: 20120519
  8. WARFARIN SODIUM [Interacting]
     Indication: PRODUCT USED FOR UNKNOWN INDICATION
     Route: 048
  9. WARFARIN SODIUM [Interacting]
     Route: 048
     Dates: start: 20120604
  10. LOXONIN [Suspect]
     Indication: ANALGESIC THERAPY
     Route: 048
     Dates: start: 20120510, end: 20120514
  11. GARENOXACIN MESYLATE [Suspect]
     Indication: PRODUCT USED FOR UNKNOWN INDICATION
     Route: 048
     Dates: start: 20120515, end: 20120521

REACTIONS (5)
  - DRUG INTERACTION [None]
  - PYELONEPHRITIS [None]
  - INTERNATIONAL NORMALISED RATIO INCREASED [None]
  - EPISTAXIS [None]
  - HAEMATURIA [None]
